FAERS Safety Report 4404460-1 (Version None)
Quarter: 2004Q3

REPORT INFORMATION
  Report Type: 
  Country: None (occurrence: None)
  Receive Date: 20040722
  Receipt Date: 20040625
  Transmission Date: 20050211
  Serious: Yes (Death)
  Sender: FDA-Public Use
  Company Number: BR-BRISTOL-MYERS SQUIBB COMPANY-12626115

PATIENT
  Age: 42 Year
  Sex: Male

DRUGS (12)
  1. REYATAZ [Suspect]
     Indication: HIV INFECTION
     Route: 048
     Dates: start: 20040609, end: 20040624
  2. ISONIAZID [Concomitant]
  3. RITONAVIR [Concomitant]
  4. LAMIVUDINE [Concomitant]
  5. ITRACONAZOLE [Concomitant]
  6. FLUOXETINE [Concomitant]
  7. CIMETIDINE [Concomitant]
  8. FOLIC ACID [Concomitant]
  9. FERROUS SULFATE TAB [Concomitant]
  10. BACLOFEN [Concomitant]
  11. MULTI-VITAMIN [Concomitant]
  12. TRIMETHOPRIM-SULFAMETHOXAZOLE [Concomitant]

REACTIONS (9)
  - AGGRESSION [None]
  - ARRHYTHMIA [None]
  - COUGH [None]
  - HICCUPS [None]
  - INSOMNIA [None]
  - MUSCLE CONTRACTURE [None]
  - NERVOUSNESS [None]
  - NEUROPATHY [None]
  - WEIGHT DECREASED [None]
